FAERS Safety Report 6809681-6 (Version None)
Quarter: 2010Q2

REPORT INFORMATION
  Report Type: 
  Country: None (occurrence: None)
  Receive Date: 20100630
  Receipt Date: 20100617
  Transmission Date: 20101027
  Serious: Yes (Hospitalization)
  Sender: FDA-Public Use
  Company Number: US-SANOFI-AVENTIS-2010SA037126

PATIENT
  Age: 74 Year
  Sex: Male

DRUGS (7)
  1. LASIX [Suspect]
     Indication: HYPERTENSION
     Route: 048
     Dates: end: 20100610
  2. LASIX [Suspect]
     Route: 048
     Dates: end: 20100610
  3. DIGOXIN [Suspect]
  4. COUMADIN [Suspect]
  5. ATORVASTATIN CALCIUM [Suspect]
  6. ALL OTHER THERAPEUTIC PRODUCTS [Suspect]
  7. POTASSIUM [Suspect]

REACTIONS (7)
  - ASTHENIA [None]
  - BLOOD GLUCOSE DECREASED [None]
  - FALL [None]
  - GASTROINTESTINAL DISORDER [None]
  - HYPOTENSION [None]
  - INJURY [None]
  - LOSS OF CONSCIOUSNESS [None]
